FAERS Safety Report 7214246-0 (Version None)
Quarter: 2011Q1

REPORT INFORMATION
  Report Type: 
  Country: None (occurrence: None)
  Receive Date: 20110107
  Receipt Date: 20101220
  Transmission Date: 20110831
  Serious: No
  Sender: FDA-Public Use
  Company Number: US-B.I. PHARMACEUTICALS,INC./RIDGEFIELD-2010-BP-15232BP

PATIENT
  Sex: Female

DRUGS (10)
  1. ONE-A-DAY WOMENS VITAMIN [Concomitant]
     Indication: SUPPLEMENTATION THERAPY
     Route: 048
  2. PACERONE [Concomitant]
     Indication: HYPERTENSION
     Dosage: 200 MG
     Route: 048
  3. PREMARIN [Concomitant]
     Indication: HORMONE REPLACEMENT THERAPY
     Dosage: 1.25 MG
     Route: 048
  4. SYNTHROID [Concomitant]
     Indication: THYROID DISORDER
     Dosage: 0.15 MG
     Route: 048
  5. LASIX [Concomitant]
     Indication: FLUID IMBALANCE
     Dosage: 40 MG
     Route: 048
  6. PROTONIX [Concomitant]
     Indication: GASTROOESOPHAGEAL REFLUX DISEASE
     Dosage: 40 MG
     Route: 048
  7. ASPIRIN [Concomitant]
     Indication: CARDIAC DISORDER
     Dosage: 325 MG
     Route: 048
  8. PRADAXA [Suspect]
     Indication: ATRIAL FIBRILLATION
     Dosage: 300 MG
     Route: 048
     Dates: start: 20101216
  9. CYTOMEL [Concomitant]
     Indication: THYROID DISORDER
     Dosage: 25 MCG
     Route: 048
  10. K-TAB [Concomitant]
     Indication: ELECTROLYTE SUBSTITUTION THERAPY
     Dosage: 10 MEQ
     Route: 048

REACTIONS (2)
  - CARDIAC ENZYMES INCREASED [None]
  - ATRIAL FIBRILLATION [None]
